FAERS Safety Report 6983686-7 (Version None)
Quarter: 2010Q3

REPORT INFORMATION
  Report Type: 
  Country: None (occurrence: None)
  Receive Date: 20100914
  Receipt Date: 20051125
  Transmission Date: 20110219
  Serious: Yes (Hospitalization)
  Sender: FDA-Public Use
  Company Number: US-WYE-H07147908

PATIENT
  Sex: Female

DRUGS (6)
  1. ADVIL LIQUI-GELS [Suspect]
     Dosage: 600 MG EVERY 6 HOURS AS NEEDED
     Route: 048
     Dates: start: 20001016, end: 20001101
  2. PREMPRO [Concomitant]
     Dosage: UNKNOWN
     Route: 048
  3. ALBUTEROL [Concomitant]
     Dosage: UNKNOWN
     Route: 065
  4. AEROBID [Concomitant]
     Dosage: UNKNOWN
     Route: 065
  5. VERAPAMIL [Concomitant]
     Dosage: UNKNOWN
     Route: 048
  6. MAXZIDE [Concomitant]
     Dosage: UNKNOWN
     Route: 048

REACTIONS (1)
  - GASTROINTESTINAL HAEMORRHAGE [None]
